FAERS Safety Report 11057676 (Version 1)
Quarter: 2015Q2

REPORT INFORMATION
  Report Type: Spontaneous
  Country: US (occurrence: US)
  Receive Date: 20150423
  Receipt Date: 20150423
  Transmission Date: 20150821
  Serious: Yes (Death, Other)
  Sender: FDA-Public Use
  Company Number: US-JNJFOC-200204-0831

PATIENT
  Age: 10 Year
  Sex: Female
  Weight: 49.9 kg

DRUGS (6)
  1. GUAIFENESIN. [Suspect]
     Active Substance: GUAIFENESIN
     Indication: PHARYNGITIS
     Route: 048
     Dates: start: 200112
  2. PSEUDOEPHEDRINE [Suspect]
     Active Substance: PSEUDOEPHEDRINE
     Indication: PHARYNGITIS
     Dosage: DAILY DOSE TEXT: 30 MG Q6H
     Route: 048
     Dates: start: 200112
  3. AMOXICILLIN. [Suspect]
     Active Substance: AMOXICILLIN
     Indication: PHARYNGITIS
     Dosage: DAILY DOSE TEXT: 500 MG TID
     Route: 048
     Dates: start: 200112
  4. TYLENOL [Suspect]
     Active Substance: ACETAMINOPHEN
     Indication: PHARYNGITIS
     Dosage: INTERVAL - 2 TABLETS EVERY 4-6 HOURS AS NEEDED
     Route: 048
     Dates: start: 200112
  5. PSEUDOEPHEDRINE [Suspect]
     Active Substance: PSEUDOEPHEDRINE
     Route: 048
  6. TYLENOL [Suspect]
     Active Substance: ACETAMINOPHEN
     Route: 048

REACTIONS (3)
  - Pneumonia [Fatal]
  - Seizure [Fatal]
  - Renal failure [Fatal]

NARRATIVE: CASE EVENT DATE: 200112
